FAERS Safety Report 6775385-1 (Version None)
Quarter: 2010Q2

REPORT INFORMATION
  Report Type: 
  Country: None (occurrence: None)
  Receive Date: 20100617
  Receipt Date: 20100607
  Transmission Date: 20101027
  Serious: No
  Sender: FDA-Public Use
  Company Number: SE-PFIZER INC-2010069649

PATIENT
  Sex: Female

DRUGS (1)
  1. PREDNISOLONE [Suspect]
     Indication: COLITIS ULCERATIVE
     Dosage: UNK
     Route: 048

REACTIONS (1)
  - CUSHINGOID [None]
